FAERS Safety Report 8259860 (Version 3)
Quarter: 2012Q4

REPORT INFORMATION
  Report Type: 
  Country: US (occurrence: US)
  Receive Date: 20111122
  Receipt Date: 20121005
  Transmission Date: 20130627
  Serious: Yes (Death, Hospitalization)
  Sender: FDA-Public Use
  Company Number: US-ACTELION-A-NJ2011-50843

PATIENT
  Age: 61 Year
  Sex: Female
  Weight: 58.96 kg

DRUGS (8)
  1. VELETRI [Suspect]
     Indication: PULMONARY ARTERIAL HYPERTENSION
     Dosage: 24 ng/kg, per min
     Route: 041
     Dates: start: 20101222
  2. METOLAZONE [Concomitant]
  3. ALDACTONE [Concomitant]
  4. IMODIUM [Concomitant]
  5. NEXIUM [Concomitant]
  6. POTASSIUM CHLORIDE [Concomitant]
  7. TORSEMIDE [Concomitant]
  8. OXYGEN [Concomitant]

REACTIONS (12)
  - Disease progression [Fatal]
  - Pulmonary arterial hypertension [Recovering/Resolving]
  - Condition aggravated [Recovering/Resolving]
  - Oesophagogastric fundoplasty [Unknown]
  - Right ventricular failure [Recovered/Resolved]
  - Portal hypertension [Recovered/Resolved]
  - Hepatic congestion [Recovered/Resolved]
  - Hepatic cirrhosis [Recovered/Resolved]
  - Ascites [Recovered/Resolved]
  - Pleural effusion [Recovered/Resolved]
  - Renal failure [Unknown]
  - Haematoma [Unknown]
